FAERS Safety Report 10040591 (Version 1)
Quarter: 2014Q1

REPORT INFORMATION
  Report Type: Spontaneous
  Country: US (occurrence: US)
  Receive Date: 20140327
  Receipt Date: 20140327
  Transmission Date: 20141002
  Serious: No
  Sender: FDA-Public Use
  Company Number: US-009507513-1403USA004997

PATIENT
  Age: 59 Year
  Sex: Male

DRUGS (3)
  1. PEGINTRON [Suspect]
     Indication: HEPATITIS C
     Dosage: 120 MICROGRAM, QW
     Route: 058
     Dates: start: 20140204
  2. RIBAPAK [Suspect]
  3. SOVALDI [Concomitant]

REACTIONS (3)
  - Red blood cell count decreased [Unknown]
  - Fatigue [Unknown]
  - Rhinorrhoea [Recovered/Resolved]
